FAERS Safety Report 9445612 (Version 2)
Quarter: 2013Q3

REPORT INFORMATION
  Report Type: Spontaneous
  Country: US (occurrence: US)
  Receive Date: 20130807
  Receipt Date: 20130826
  Transmission Date: 20140515
  Serious: No
  Sender: FDA-Public Use
  Company Number: US-BAXTER-2013BAX031207

PATIENT
  Age: 59 Year
  Sex: Male

DRUGS (1)
  1. DIANEAL LOW CALCIUM [Suspect]
     Indication: PERITONEAL DIALYSIS
     Route: 033
     Dates: start: 20120628

REACTIONS (4)
  - Product contamination physical [Unknown]
  - Poor quality drug administered [Unknown]
  - Weight increased [Recovered/Resolved]
  - Constipation [Not Recovered/Not Resolved]
